FAERS Safety Report 6539479-8 (Version None)
Quarter: 2010Q1

REPORT INFORMATION
  Report Type: 
  Country: None (occurrence: None)
  Receive Date: 20100115
  Receipt Date: 20091201
  Transmission Date: 20100710
  Serious: Yes (Hospitalization)
  Sender: FDA-Public Use
  Company Number: A0832893A

PATIENT
  Age: 52 Year
  Sex: Female
  Weight: 92.3 kg

DRUGS (11)
  1. AVANDARYL [Suspect]
     Dosage: 4MG PER DAY
     Route: 048
     Dates: end: 20080101
  2. AVANDAMET [Suspect]
     Route: 048
     Dates: start: 20030813
  3. AVANDIA [Suspect]
     Indication: DIABETES MELLITUS
     Dosage: 4MG PER DAY
     Route: 048
  4. VYTORIN [Concomitant]
  5. DIOVAN [Concomitant]
  6. ALBUTEROL [Concomitant]
  7. ADVAIR DISKUS 100/50 [Concomitant]
  8. XOPENEX [Concomitant]
  9. BENICAR [Concomitant]
     Dates: end: 20040301
  10. NORVASC [Concomitant]
  11. GLUCOTROL XL [Concomitant]

REACTIONS (4)
  - HEPATIC CIRRHOSIS [None]
  - HEPATIC PAIN [None]
  - HEPATIC STEATOSIS [None]
  - SWELLING [None]
